APPROVED DRUG PRODUCT: FLUCONAZOLE
Active Ingredient: FLUCONAZOLE
Strength: 200MG/5ML
Dosage Form/Route: FOR SUSPENSION;ORAL
Application: A077523 | Product #002
Applicant: IVAX PHARMACEUTICALS INC SUB TEVA PHARMACEUTICALS USA
Approved: Sep 12, 2007 | RLD: No | RS: No | Type: DISCN